FAERS Safety Report 24247369 (Version 1)
Quarter: 2024Q3

REPORT INFORMATION
  Report Type: Spontaneous
  Country: ZA (occurrence: None)
  Receive Date: 20240826
  Receipt Date: 20240826
  Transmission Date: 20241017
  Serious: Yes (Death)
  Sender: ASTRAZENECA
  Company Number: 2024A191951

PATIENT
  Age: 63 Year
  Sex: Female

DRUGS (11)
  1. DAPAGLIFLOZIN PROPANEDIOL [Suspect]
     Active Substance: DAPAGLIFLOZIN PROPANEDIOL
     Indication: Type 2 diabetes mellitus
     Route: 048
  2. GLICLAZIDE [Concomitant]
     Active Substance: GLICLAZIDE
     Indication: Type 2 diabetes mellitus
  3. FLUTICASONE PROPIONATE\SALMETEROL XINAFOATE [Concomitant]
     Active Substance: FLUTICASONE PROPIONATE\SALMETEROL XINAFOATE
     Indication: Asthma
     Dosage: 60 DOSE 50/250 MCG
     Route: 055
  4. FLUTICASONE PROPIONATE\SALMETEROL XINAFOATE [Concomitant]
     Active Substance: FLUTICASONE PROPIONATE\SALMETEROL XINAFOATE
     Indication: Chronic obstructive pulmonary disease
     Dosage: 60 DOSE 50/250 MCG
     Route: 055
  5. FLUTICASONE PROPIONATE\SALMETEROL XINAFOATE [Concomitant]
     Active Substance: FLUTICASONE PROPIONATE\SALMETEROL XINAFOATE
     Indication: Bronchitis
     Dosage: 60 DOSE 50/250 MCG
     Route: 055
  6. FLUTICASONE PROPIONATE\SALMETEROL XINAFOATE [Concomitant]
     Active Substance: FLUTICASONE PROPIONATE\SALMETEROL XINAFOATE
     Indication: Bronchospasm
     Dosage: 60 DOSE 50/250 MCG
     Route: 055
  7. SPIRACTIN [Concomitant]
     Indication: Hypertension
     Route: 048
  8. SPIRACTIN [Concomitant]
     Indication: Oedema
     Route: 048
  9. SPIRACTIN [Concomitant]
     Indication: Cardiac failure
     Route: 048
  10. SPIRACTIN [Concomitant]
     Indication: Hepatic cirrhosis
     Route: 048
  11. SPIRACTIN [Concomitant]
     Indication: Renal impairment
     Route: 048

REACTIONS (2)
  - Cardiac disorder [Fatal]
  - Lung disorder [Fatal]
